FAERS Safety Report 9795921 (Version 4)
Quarter: 2014Q1

REPORT INFORMATION
  Report Type: Report from Study
  Country: US (occurrence: US)
  Receive Date: 20140103
  Receipt Date: 20140228
  Transmission Date: 20141002
  Serious: Yes (Hospitalization)
  Sender: FDA-Public Use
  Company Number: US-PFIZER INC-2013370765

PATIENT
  Age: 64 Year
  Sex: Male
  Weight: 81.2 kg

DRUGS (7)
  1. AXITINIB [Suspect]
     Indication: SQUAMOUS CELL CARCINOMA OF HEAD AND NECK
     Dosage: 5 MG, 2X/DAY
     Route: 048
     Dates: start: 20131213, end: 20131226
  2. AXITINIB [Suspect]
     Dosage: 5 MG, 2X/DAY
     Route: 048
     Dates: start: 20140103, end: 20140110
  3. NORVASC [Concomitant]
     Dosage: 5 MG, UNK
  4. DURAGESIC [Concomitant]
     Dosage: 50 MCG/HR TD 72 HR PATCH
  5. IBUPROFEN [Concomitant]
     Dosage: 100 MG/5ML
  6. OXYCODONE [Concomitant]
     Dosage: 5MG/5ML
  7. OSMOLITE [Concomitant]
     Dosage: 1.5 CAL

REACTIONS (1)
  - Mouth haemorrhage [Recovered/Resolved]
